FAERS Safety Report 6934971-6 (Version None)
Quarter: 2010Q3

REPORT INFORMATION
  Report Type: 
  Country: None (occurrence: None)
  Receive Date: 20100821
  Receipt Date: 20100818
  Transmission Date: 20110219
  Serious: Yes (Other)
  Sender: FDA-Public Use
  Company Number: GXKR2010DE09191

PATIENT
  Age: 9 Year

DRUGS (1)
  1. CETIRIZINE (NGX) [Suspect]
     Route: 048

REACTIONS (1)
  - EPILEPSY [None]
